FAERS Safety Report 8331778-2 (Version None)
Quarter: 2012Q2

REPORT INFORMATION
  Report Type: 
  Country: None (occurrence: None)
  Receive Date: 20120502
  Receipt Date: 20120423
  Transmission Date: 20120825
  Serious: No
  Sender: FDA-Public Use
  Company Number: US-AMGEN-USASP2012025545

PATIENT
  Age: 30 Year
  Sex: Female

DRUGS (1)
  1. ENBREL [Suspect]
     Indication: ECZEMA
     Dosage: 50 MG, QWK
     Dates: start: 20110101, end: 20120306

REACTIONS (3)
  - SKIN LESION [None]
  - SKIN INFECTION [None]
  - CARPAL TUNNEL DECOMPRESSION [None]
